FAERS Safety Report 7916530-1 (Version None)
Quarter: 2011Q4

REPORT INFORMATION
  Report Type: 
  Country: None (occurrence: None)
  Receive Date: 20111116
  Receipt Date: 20111103
  Transmission Date: 20120403
  Serious: Yes (Hospitalization, Other)
  Sender: FDA-Public Use
  Company Number: FR-ELI_LILLY_AND_COMPANY-FR201106007367

PATIENT
  Age: 74 Year
  Sex: Female

DRUGS (7)
  1. DURAGESIC-100 [Concomitant]
     Route: 048
  2. MORPHINE [Concomitant]
  3. FERROUS SULFATE TAB [Concomitant]
     Route: 048
  4. AMLODIPINE [Concomitant]
     Route: 048
  5. FORTEO [Suspect]
     Indication: SPINAL FRACTURE
     Dosage: 20 UG, QD
     Route: 058
     Dates: end: 20110401
  6. ACETAMINOPHEN AND CODEINE PHOSPHATE [Concomitant]
     Route: 048
  7. OMEPRAZOLE [Concomitant]
     Route: 048

REACTIONS (1)
  - PANCREATITIS ACUTE [None]
